FAERS Safety Report 21897933 (Version 7)
Quarter: 2023Q4

REPORT INFORMATION
  Report Type: Report from Study
  Country: US (occurrence: US)
  Receive Date: 20230123
  Receipt Date: 20231010
  Transmission Date: 20240110
  Serious: Yes (Other)
  Sender: FDA-Public Use
  Company Number: US-UCBSA-2023002958

PATIENT
  Age: 50 Year
  Sex: Female
  Weight: 305 kg

DRUGS (5)
  1. CERTOLIZUMAB PEGOL [Suspect]
     Active Substance: CERTOLIZUMAB PEGOL
     Indication: Psoriatic arthropathy
     Dosage: 400 MILLIGRAM, EV 2 WEEKS(QOW)
     Dates: start: 20221229
  2. CERTOLIZUMAB PEGOL [Suspect]
     Active Substance: CERTOLIZUMAB PEGOL
     Dosage: 400 MILLIGRAM, EV 4 WEEKS
  3. TYLENOL [Concomitant]
     Active Substance: ACETAMINOPHEN
     Indication: Pain
     Dosage: UNK
  4. METHOTREXATE [Concomitant]
     Active Substance: METHOTREXATE
     Indication: Product used for unknown indication
     Dosage: UNK
  5. METHOTREXATE [Concomitant]
     Active Substance: METHOTREXATE
     Dosage: DOSE REDUCED

REACTIONS (15)
  - Nephrolithiasis [Not Recovered/Not Resolved]
  - Bone pain [Recovered/Resolved]
  - Paraesthesia [Unknown]
  - Memory impairment [Unknown]
  - Nocturia [Unknown]
  - COVID-19 [Recovering/Resolving]
  - Pain in extremity [Recovered/Resolved]
  - Contusion [Unknown]
  - Malaise [Unknown]
  - Arthralgia [Recovered/Resolved]
  - Feeling cold [Recovered/Resolved]
  - Fungal infection [Recovered/Resolved]
  - Injection site pain [Unknown]
  - Psoriasis [Recovering/Resolving]
  - Stress [Unknown]

NARRATIVE: CASE EVENT DATE: 20230101
